FAERS Safety Report 12400221 (Version 1)
Quarter: 2016Q2

REPORT INFORMATION
  Report Type: Spontaneous
  Country: US (occurrence: None)
  Receive Date: 20160524
  Receipt Date: 20160524
  Transmission Date: 20160815
  Serious: Yes (Hospitalization)
  Sender: FDA-Public Use
  Company Number: None

PATIENT
  Age: 22 Year
  Sex: Female
  Weight: 59.88 kg

DRUGS (4)
  1. KLONIPIN [Concomitant]
     Active Substance: CLONAZEPAM
  2. FLONASE [Concomitant]
     Active Substance: FLUTICASONE PROPIONATE
  3. MIRENA [Suspect]
     Active Substance: LEVONORGESTREL
  4. DAILY MULTIVITAMIN [Concomitant]
     Active Substance: VITAMINS

REACTIONS (2)
  - Device dislocation [None]
  - Embedded device [None]

NARRATIVE: CASE EVENT DATE: 20160421
